FAERS Safety Report 8123058-5 (Version None)
Quarter: 2012Q1

REPORT INFORMATION
  Report Type: 
  Country: None (occurrence: None)
  Receive Date: 20120208
  Receipt Date: 20120206
  Transmission Date: 20120608
  Serious: No
  Sender: FDA-Public Use
  Company Number: US-PFIZER INC-2012033386

PATIENT
  Sex: Female

DRUGS (2)
  1. CHANTIX [Suspect]
     Dosage: UNK, 2X/DAY
     Route: 048
     Dates: start: 20120101
  2. CHANTIX [Suspect]
     Dosage: UNK
     Route: 048
     Dates: start: 20120101

REACTIONS (3)
  - ABDOMINAL DISCOMFORT [None]
  - NAUSEA [None]
  - VOMITING [None]
